FAERS Safety Report 25834826 (Version 2)
Quarter: 2025Q4

REPORT INFORMATION
  Report Type: Spontaneous
  Country: JP (occurrence: None)
  Receive Date: 20250923
  Receipt Date: 20251001
  Transmission Date: 20260118
  Serious: Yes (Death)
  Sender: ORION
  Company Number: JP-Orion Corporation ORION PHARMA-ENTC2025-0114

PATIENT
  Age: 72 Year
  Sex: Female

DRUGS (1)
  1. STALEVO [Suspect]
     Active Substance: CARBIDOPA\ENTACAPONE\LEVODOPA
     Indication: Parkinson^s disease
     Dosage: COMBINATION TABLETS, STRENGTH: LEVODOPA(L50, DOSE 275 MG)-CARBIDOPA-ENTACAPONE, 1 TABLET UPON WAKING

REACTIONS (1)
  - Death [Fatal]
